FAERS Safety Report 9325388 (Version 2)
Quarter: 2013Q3

REPORT INFORMATION
  Report Type: Spontaneous
  Country: JP (occurrence: JP)
  Receive Date: 20130604
  Receipt Date: 20130717
  Transmission Date: 20140515
  Serious: Yes (Hospitalization)
  Sender: FDA-Public Use
  Company Number: JP-AMGEN-JPNSP2013038990

PATIENT
  Age: 78 Year
  Sex: Male
  Weight: 55 kg

DRUGS (7)
  1. VECTIBIX [Suspect]
     Indication: COLON CANCER
     Dosage: 300 MG, Q2WK
     Route: 041
     Dates: start: 20130228, end: 20130415
  2. ELPLAT [Suspect]
     Indication: COLON CANCER
     Dosage: 150 MG, Q3WK
     Route: 041
     Dates: start: 20130207, end: 20130415
  3. XELODA [Concomitant]
     Indication: COLON CANCER
     Dosage: 2400 MG, UNK
     Route: 048
     Dates: start: 20130207, end: 20130429
  4. HICORT [Concomitant]
     Indication: INFECTION
     Dosage: 8 MG, Q3WK
     Route: 042
     Dates: start: 20130207, end: 20130415
  5. POLARAMINE [Concomitant]
     Indication: PRURITUS
     Dosage: 5 MG, Q3WK
     Route: 042
     Dates: start: 20130228, end: 20130415
  6. MINOCYCLINE HYDROCHLORIDE [Concomitant]
     Dosage: 10 MG, BID
     Route: 048
     Dates: start: 20130228, end: 20130506
  7. PYDOXAL [Concomitant]
     Indication: ACNE
     Dosage: 20 MG, BID
     Route: 048
     Dates: start: 20130207, end: 20130429

REACTIONS (1)
  - Interstitial lung disease [Recovering/Resolving]
